FAERS Safety Report 6920425-X (Version None)
Quarter: 2010Q3

REPORT INFORMATION
  Report Type: 
  Country: None (occurrence: None)
  Receive Date: 20100812
  Receipt Date: 20100803
  Transmission Date: 20110219
  Serious: Yes (Hospitalization)
  Sender: FDA-Public Use
  Company Number: US-BIOGENIDEC-2010BI014124

PATIENT
  Age: 55 Year
  Sex: Female
  Weight: 43 kg

DRUGS (2)
  1. AVONEX [Suspect]
     Indication: MULTIPLE SCLEROSIS
     Route: 030
     Dates: start: 20011201, end: 20030101
  2. AVONEX [Suspect]
     Route: 030
     Dates: start: 20030101

REACTIONS (20)
  - ARTHRALGIA [None]
  - BALANCE DISORDER [None]
  - DEVICE FAILURE [None]
  - FALL [None]
  - FATIGUE [None]
  - FEELING DRUNK [None]
  - HAND FRACTURE [None]
  - HYPOTENSION [None]
  - INJECTION SITE HAEMORRHAGE [None]
  - INJECTION SITE PAIN [None]
  - JOINT SWELLING [None]
  - LOSS OF CONTROL OF LEGS [None]
  - MICTURITION URGENCY [None]
  - MOBILITY DECREASED [None]
  - MULTIPLE SCLEROSIS [None]
  - MULTIPLE SCLEROSIS RELAPSE [None]
  - MUSCLE TWITCHING [None]
  - OEDEMA PERIPHERAL [None]
  - UNDERWEIGHT [None]
  - URINARY TRACT INFECTION [None]
